FAERS Safety Report 4390761-2 (Version None)
Quarter: 2004Q3

REPORT INFORMATION
  Report Type: 
  Country: None (occurrence: None)
  Receive Date: 20040706
  Receipt Date: 20040706
  Transmission Date: 20050211
  Serious: Yes (Other)
  Sender: FDA-Public Use
  Company Number: None

PATIENT
  Age: 8 Year
  Sex: Female
  Weight: 15.4223 kg

DRUGS (1)
  1. DEFEROXAMINE 2 GM (HOSPIRA) [Suspect]
     Indication: THALASSAEMIA
     Dosage: 750 MG SQ DAILY
     Route: 058
     Dates: start: 20040527

REACTIONS (2)
  - INJECTION SITE RASH [None]
  - RASH [None]
